FAERS Safety Report 4442046-3 (Version None)
Quarter: 2004Q3

REPORT INFORMATION
  Report Type: 
  Country: None (occurrence: None)
  Receive Date: 20040901
  Receipt Date: 20040820
  Transmission Date: 20050211
  Serious: Yes (Hospitalization, Other)
  Sender: FDA-Public Use
  Company Number: GBWYE995624AUG04

PATIENT
  Age: 63 Year
  Sex: Female

DRUGS (7)
  1. EFFEXOR [Suspect]
     Indication: DEPRESSION
     Dosage: 37.5 MG ONE DOSE
     Route: 048
     Dates: start: 20040608, end: 20040608
  2. DIAMICRON (GLICLAZIDE) [Concomitant]
  3. ROSIGLITAZONE (ROSIGLITAZONE) [Concomitant]
  4. LISINOPRIL [Concomitant]
  5. ROFECOXIB [Concomitant]
  6. SIMVASTATIN [Concomitant]
  7. ASPIRIN [Concomitant]

REACTIONS (1)
  - MENIERE'S DISEASE [None]
